FAERS Safety Report 21005118 (Version 4)
Quarter: 2022Q3

REPORT INFORMATION
  Report Type: Spontaneous
  Country: US (occurrence: US)
  Receive Date: 20220624
  Receipt Date: 20220817
  Transmission Date: 20221026
  Serious: No
  Sender: FDA-Public Use
  Company Number: US-NOVARTISTESTPH-NVSC2022US145051

PATIENT
  Sex: Male

DRUGS (2)
  1. XIIDRA [Suspect]
     Active Substance: LIFITEGRAST
     Indication: Product used for unknown indication
     Dosage: UNK
     Route: 065
     Dates: end: 20220612
  2. XIIDRA [Suspect]
     Active Substance: LIFITEGRAST
     Dosage: UNK UNK, BID (PLACE 1 DROP IN BOTH EYES TWICE A DAY)
     Route: 047

REACTIONS (7)
  - Hypersensitivity [Unknown]
  - Wheezing [Unknown]
  - Throat irritation [Unknown]
  - Pharyngeal swelling [Unknown]
  - Rhinorrhoea [Unknown]
  - Dysphonia [Unknown]
  - Vision blurred [Unknown]
